FAERS Safety Report 9334667 (Version 1)
Quarter: 2013Q2

REPORT INFORMATION
  Report Type: Spontaneous
  Country: US (occurrence: US)
  Receive Date: 20130606
  Receipt Date: 20130606
  Transmission Date: 20140414
  Serious: No
  Sender: FDA-Public Use
  Company Number: US-AMGEN-USASP2013005451

PATIENT
  Age: 66 Year
  Sex: Female
  Weight: 117.91 kg

DRUGS (8)
  1. PROLIA [Suspect]
     Indication: OSTEOPOROSIS POSTMENOPAUSAL
     Dosage: 60 MG, Q6MO
     Dates: start: 2012
  2. NEXIUM                             /01479302/ [Concomitant]
  3. ZOLOFT [Concomitant]
  4. LIPITOR [Concomitant]
  5. GLIPIZIDE XL [Concomitant]
  6. ALLEGRA [Concomitant]
  7. ASPIRIN [Concomitant]
  8. LISINOPRIL [Concomitant]

REACTIONS (1)
  - Pain in jaw [Unknown]
